FAERS Safety Report 7623366-8 (Version None)
Quarter: 2011Q3

REPORT INFORMATION
  Report Type: 
  Country: None (occurrence: None)
  Receive Date: 20110720
  Receipt Date: 20110708
  Transmission Date: 20111222
  Serious: Yes (Other)
  Sender: FDA-Public Use
  Company Number: MY-ROCHE-788812

PATIENT
  Sex: Female

DRUGS (1)
  1. MIRCERA [Suspect]
     Indication: ANAEMIA
     Route: 065
     Dates: start: 20110401

REACTIONS (1)
  - HAEMOGLOBIN DECREASED [None]
